FAERS Safety Report 18311631 (Version 1)
Quarter: 2020Q3

REPORT INFORMATION
  Report Type: Spontaneous
  Country: US (occurrence: US)
  Receive Date: 20200924
  Receipt Date: 20200924
  Transmission Date: 20201103
  Serious: Yes (Death)
  Sender: FDA-Public Use
  Company Number: None

PATIENT
  Age: 84 Year
  Sex: Female

DRUGS (15)
  1. CEFDINIR. [Concomitant]
     Active Substance: CEFDINIR
  2. TERBINAFINE. [Concomitant]
     Active Substance: TERBINAFINE
  3. EPOGEN [Suspect]
     Active Substance: ERYTHROPOIETIN
     Indication: PRODUCT USED FOR UNKNOWN INDICATION
     Dosage: OTHER FREQUENCY:EVERY 4 WEEKS;?
     Route: 058
     Dates: start: 20200722, end: 20200924
  4. SERTRALINE [Concomitant]
     Active Substance: SERTRALINE HYDROCHLORIDE
  5. MORPHINE [Concomitant]
     Active Substance: MORPHINE
  6. LORAZEPAM. [Concomitant]
     Active Substance: LORAZEPAM
  7. HYOSCYAMINE. [Concomitant]
     Active Substance: HYOSCYAMINE
  8. DIVALOPREX [Concomitant]
     Active Substance: DIVALPROEX SODIUM
  9. MIDODRINE [Concomitant]
     Active Substance: MIDODRINE
  10. FEROSUL [Concomitant]
     Active Substance: FERROUS SULFATE
  11. DIVALPROEX [Concomitant]
     Active Substance: DIVALPROEX SODIUM
  12. PACERONE [Concomitant]
     Active Substance: AMIODARONE HYDROCHLORIDE
  13. QUETIAPINE. [Concomitant]
     Active Substance: QUETIAPINE
  14. DOK [Concomitant]
     Active Substance: DOCUSATE SODIUM
  15. PREDNISONE. [Concomitant]
     Active Substance: PREDNISONE

REACTIONS (1)
  - Death [None]

NARRATIVE: CASE EVENT DATE: 20200924
